FAERS Safety Report 4905510-6 (Version None)
Quarter: 2006Q1

REPORT INFORMATION
  Report Type: 
  Country: None (occurrence: None)
  Receive Date: 20060208
  Receipt Date: 20050707
  Transmission Date: 20060701
  Serious: Yes (Death, Hospitalization, Other)
  Sender: FDA-Public Use
  Company Number: PHNR2005AU01066

PATIENT
  Age: 74 Year
  Sex: Female

DRUGS (10)
  1. HEPARIN [Suspect]
     Dosage: UNK, UNK
     Dates: start: 20050622, end: 20050601
  2. FRUSEMIDE [Concomitant]
  3. PARACETAMOL [Concomitant]
     Dosage: 1 G, QID
     Route: 048
  4. NILSTAT [Concomitant]
     Route: 048
  5. ONDANSETRON [Concomitant]
     Dosage: UNK, PRN
  6. GLEEVEC [Suspect]
     Indication: GASTROINTESTINAL STROMAL TUMOUR
     Dosage: 400 MG, DAILY
     Dates: start: 20050319, end: 20050512
  7. GLEEVEC [Suspect]
     Dosage: 600 MG,DAILY
     Route: 048
     Dates: start: 20050513, end: 20050625
  8. ZOFRAN [Concomitant]
     Dosage: 4 MG, BID, AS OFTEN AS NECESSARY
  9. CLEXANE [Concomitant]
  10. LASIX [Concomitant]
     Dosage: 40 MG, QD, MORNING

REACTIONS (25)
  - ABDOMINAL MASS [None]
  - ASTHENIA [None]
  - BLOOD CREATININE INCREASED [None]
  - BLOOD POTASSIUM DECREASED [None]
  - COAGULOPATHY [None]
  - DECREASED APPETITE [None]
  - DEHYDRATION [None]
  - DRUG RESISTANCE [None]
  - ESCHERICHIA SEPSIS [None]
  - GASTROINTESTINAL STROMAL TUMOUR [None]
  - GLOMERULAR FILTRATION RATE DECREASED [None]
  - HAEMATOMA [None]
  - HYDRONEPHROSIS [None]
  - MALIGNANT NEOPLASM PROGRESSION [None]
  - MEDICAL DEVICE IMPLANTATION [None]
  - METASTASES TO LIVER [None]
  - MUCOSAL INFLAMMATION [None]
  - MUSCLE HAEMORRHAGE [None]
  - OEDEMA PERIPHERAL [None]
  - ORAL CANDIDIASIS [None]
  - ORAL INTAKE REDUCED [None]
  - PAIN IN EXTREMITY [None]
  - PULMONARY EMBOLISM [None]
  - VENA CAVA THROMBOSIS [None]
  - VENOUS THROMBOSIS [None]
